FAERS Safety Report 5645577-3 (Version None)
Quarter: 2008Q1

REPORT INFORMATION
  Report Type: 
  Country: None (occurrence: None)
  Receive Date: 20080229
  Receipt Date: 20080227
  Transmission Date: 20080703
  Serious: Yes (Life-Threatening)
  Sender: FDA-Public Use
  Company Number: CH-JNJFOC-20080206264

PATIENT
  Age: 53 Year
  Sex: Female

DRUGS (5)
  1. RISPERDAL [Suspect]
     Indication: DRUG USE FOR UNKNOWN INDICATION
     Route: 048
  2. REMERON [Interacting]
     Indication: DRUG USE FOR UNKNOWN INDICATION
  3. EFFEXOR [Interacting]
     Indication: DRUG USE FOR UNKNOWN INDICATION
  4. LITHIUM CARBONATE [Interacting]
     Indication: DRUG USE FOR UNKNOWN INDICATION
     Route: 048
  5. TEMESTA [Interacting]
     Indication: DRUG USE FOR UNKNOWN INDICATION

REACTIONS (2)
  - DRUG INTERACTION [None]
  - PULMONARY EMBOLISM [None]
